FAERS Safety Report 7352714-1 (Version None)
Quarter: 2011Q1

REPORT INFORMATION
  Report Type: 
  Country: None (occurrence: None)
  Receive Date: 20110310
  Receipt Date: 20110310
  Transmission Date: 20110831
  Serious: Yes (Other)
  Sender: FDA-Public Use
  Company Number: None

PATIENT
  Sex: Female
  Weight: 86.1834 kg

DRUGS (2)
  1. HYDROCODONE BITARTRATE AND CHLORPHENIRAMINE MALEATE POLISTIREX [Suspect]
     Indication: COUGH
     Dosage: 1 TEASPON 12 HOURS PO
     Route: 048
     Dates: start: 20110303, end: 20110304
  2. HYDROCODONE BITARTRATE AND CHLORPHENIRAMINE MALEATE POLISTIREX [Suspect]
     Indication: UPPER RESPIRATORY TRACT INFECTION
     Dosage: 1 TEASPON 12 HOURS PO
     Route: 048
     Dates: start: 20110303, end: 20110304

REACTIONS (2)
  - ABNORMAL DREAMS [None]
  - MENTAL DISORDER [None]
